FAERS Safety Report 7860169-3 (Version None)
Quarter: 2011Q4

REPORT INFORMATION
  Report Type: 
  Country: None (occurrence: None)
  Receive Date: 20111027
  Receipt Date: 20111020
  Transmission Date: 20120403
  Serious: No
  Sender: FDA-Public Use
  Company Number: US-B.I. PHARMACEUTICALS,INC./RIDGEFIELD-2011-BP-24704BP

PATIENT
  Age: 80 Year
  Sex: Female

DRUGS (5)
  1. COD LIVER OIL [Concomitant]
     Indication: SUPPLEMENTATION THERAPY
  2. PRADAXA [Suspect]
     Indication: ATRIAL FIBRILLATION
     Dosage: 300 MG
     Route: 048
     Dates: start: 20110701
  3. VITAMIN TAB [Concomitant]
     Indication: SUPPLEMENTATION THERAPY
  4. VIT C [Concomitant]
     Indication: SUPPLEMENTATION THERAPY
  5. FIBER [Concomitant]
     Indication: SUPPLEMENTATION THERAPY

REACTIONS (2)
  - OEDEMA PERIPHERAL [None]
  - JOINT SWELLING [None]
